FAERS Safety Report 6007617-1 (Version None)
Quarter: 2008Q4

REPORT INFORMATION
  Report Type: 
  Country: None (occurrence: None)
  Receive Date: 20081217
  Receipt Date: 20080321
  Transmission Date: 20090506
  Serious: No
  Sender: FDA-Public Use
  Company Number: US-ASTRAZENECA-2008UW05814

PATIENT
  Age: 78 Year
  Sex: Female
  Weight: 65.8 kg

DRUGS (13)
  1. CRESTOR [Suspect]
     Indication: BLOOD CHOLESTEROL
     Route: 048
     Dates: start: 20010101, end: 20070904
  2. ACTONEL [Concomitant]
  3. PREMARIN [Concomitant]
  4. XYZAL [Concomitant]
  5. NASACORT AQ [Concomitant]
  6. MIRAPEX [Concomitant]
  7. METOPROLOL TARTRATE [Concomitant]
  8. FISH OIL [Concomitant]
  9. FLAX OIL [Concomitant]
  10. FOLIC ACID [Concomitant]
  11. COENZYME Q10 WITH E [Concomitant]
  12. EYE VITAMIN [Concomitant]
  13. ASPIRIN [Concomitant]

REACTIONS (4)
  - BLOOD CREATINE PHOSPHOKINASE INCREASED [None]
  - GAIT DISTURBANCE [None]
  - MUSCLE SPASMS [None]
  - MUSCULAR WEAKNESS [None]
